FAERS Safety Report 18893306 (Version 3)
Quarter: 2021Q1

REPORT INFORMATION
  Report Type: Report from Study
  Country: NL (occurrence: NL)
  Receive Date: 20210215
  Receipt Date: 20210310
  Transmission Date: 20210420
  Serious: No
  Sender: FDA-Public Use
  Company Number: NL-TOLMAR, INC.-21NL025299

PATIENT
  Age: 70 Year
  Sex: Male

DRUGS (2)
  1. ELIGARD [Suspect]
     Active Substance: LEUPROLIDE ACETATE
     Dosage: 22.5 MG, Q 3 MONTH
     Route: 058
     Dates: start: 20200907
  2. ELIGARD [Suspect]
     Active Substance: LEUPROLIDE ACETATE
     Indication: PROSTATE CANCER
     Dosage: 22.5 MG, Q 3 MONTH
     Route: 058
     Dates: start: 20201207, end: 20210129

REACTIONS (1)
  - Drug ineffective [Unknown]
